FAERS Safety Report 14212583 (Version 7)
Quarter: 2022Q2

REPORT INFORMATION
  Report Type: Spontaneous
  Country: FR (occurrence: FR)
  Receive Date: 20171122
  Receipt Date: 20220629
  Transmission Date: 20220721
  Serious: Yes (Death, Other)
  Sender: FDA-Public Use
  Company Number: FR-PFIZER INC-2017500398

PATIENT
  Age: 68 Year
  Sex: Male
  Weight: 184 kg

DRUGS (8)
  1. LINEZOLID [Suspect]
     Active Substance: LINEZOLID
     Indication: Osteitis
     Dosage: UNK
     Route: 042
     Dates: start: 20171025, end: 20171103
  2. INIPOMP [Suspect]
     Active Substance: PANTOPRAZOLE SODIUM
     Indication: Prophylaxis
     Dosage: 1 DF, 1X/DAY
     Route: 048
     Dates: start: 20171026, end: 20171102
  3. CEFTRIAXONE SODIUM [Suspect]
     Active Substance: CEFTRIAXONE SODIUM
     Indication: Osteitis
     Dosage: UNK
     Route: 042
     Dates: start: 20171025, end: 20171103
  4. HEPARIN SODIUM [Suspect]
     Active Substance: HEPARIN SODIUM
     Indication: Atrial fibrillation
     Dosage: UNK
     Route: 042
     Dates: start: 20171025, end: 20171102
  5. FUROSEMIDE [Suspect]
     Active Substance: FUROSEMIDE
     Indication: Sodium retention
     Dosage: UNK
     Route: 042
     Dates: start: 20171025, end: 20171102
  6. PERFALGAN [Suspect]
     Active Substance: ACETAMINOPHEN
     Indication: Analgesic therapy
     Dosage: 6 G, 1X/DAY
     Route: 042
     Dates: start: 20171026, end: 20171103
  7. FLAGYL [Suspect]
     Active Substance: METRONIDAZOLE\METRONIDAZOLE HYDROCHLORIDE
     Indication: Osteitis
     Dosage: UNK
     Route: 042
     Dates: start: 20171025, end: 20171103
  8. NOREPINEPHRINE [Suspect]
     Active Substance: NOREPINEPHRINE
     Indication: Circulatory collapse
     Dosage: UNK
     Route: 042
     Dates: start: 20171025, end: 20171103

REACTIONS (4)
  - Off label use [Fatal]
  - Overdose [Fatal]
  - Retroperitoneal haematoma [Fatal]
  - Shock haemorrhagic [Fatal]

NARRATIVE: CASE EVENT DATE: 20171026
